FAERS Safety Report 25361087 (Version 2)
Quarter: 2025Q2

REPORT INFORMATION
  Report Type: Spontaneous
  Country: US (occurrence: US)
  Receive Date: 20250527
  Receipt Date: 20250605
  Transmission Date: 20250716
  Serious: No
  Sender: ROCHE
  Company Number: US-ROCHE-10000289281

PATIENT
  Sex: Female

DRUGS (13)
  1. XOLAIR PFS [Suspect]
     Active Substance: OMALIZUMAB
     Indication: Essential thrombocythaemia
     Dosage: FORM STRENGTH: 300MG/2ML
     Route: 058
     Dates: start: 202409
  2. XOLAIR PFS [Suspect]
     Active Substance: OMALIZUMAB
     Indication: Urticaria
     Dosage: LAST INJECTION
     Route: 058
     Dates: start: 20250523
  3. XOLAIR PFS [Suspect]
     Active Substance: OMALIZUMAB
     Route: 058
     Dates: start: 202408
  4. ALLOPURINOL [Concomitant]
     Active Substance: ALLOPURINOL
  5. LEFLUNOMIDE [Concomitant]
     Active Substance: LEFLUNOMIDE
  6. CYCLOBENZAPRINE [Concomitant]
     Active Substance: CYCLOBENZAPRINE
  7. XARELTO [Concomitant]
     Active Substance: RIVAROXABAN
  8. SIMPONI ARIA [Concomitant]
     Active Substance: GOLIMUMAB
     Route: 042
  9. GABAPENTIN [Concomitant]
     Active Substance: GABAPENTIN
  10. XANAX [Concomitant]
     Active Substance: ALPRAZOLAM
  11. PANTOPRAZOLE SODIUM [Concomitant]
     Active Substance: PANTOPRAZOLE SODIUM
  12. ROSUVASTATIN CALCIUM [Concomitant]
     Active Substance: ROSUVASTATIN CALCIUM
  13. PAROXETINE [Concomitant]
     Active Substance: PAROXETINE

REACTIONS (4)
  - Headache [Unknown]
  - Fatigue [Unknown]
  - Abdominal pain [Unknown]
  - Off label use [Unknown]
